FAERS Safety Report 9190507 (Version 1)
Quarter: 2013Q1

REPORT INFORMATION
  Report Type: Spontaneous
  Country: CO (occurrence: CO)
  Receive Date: 20130326
  Receipt Date: 20130326
  Transmission Date: 20140127
  Serious: Yes (Other)
  Sender: FDA-Public Use
  Company Number: CO-PFIZER INC-2013094783

PATIENT
  Age: 84 Year
  Sex: Female

DRUGS (1)
  1. LIPITOR [Suspect]
     Indication: BLOOD TRIGLYCERIDES INCREASED
     Dosage: 40 MG, AS NEEDED
     Route: 048
     Dates: start: 2000

REACTIONS (3)
  - Arterial occlusive disease [Unknown]
  - Dizziness [Unknown]
  - Blood pressure increased [Unknown]
